FAERS Safety Report 9548018 (Version 2)
Quarter: 2013Q3

REPORT INFORMATION
  Report Type: Spontaneous
  Country: US (occurrence: US)
  Receive Date: 20130924
  Receipt Date: 20130924
  Transmission Date: 20140515
  Serious: Yes (Hospitalization, Other)
  Sender: FDA-Public Use
  Company Number: US-NAPPMUNDI-USA-2011-0067986

PATIENT
  Age: 26 Year
  Sex: Female
  Weight: 66.21 kg

DRUGS (1)
  1. MS CONTIN TABLETS [Suspect]
     Indication: BACK PAIN
     Dosage: 60 MG, BID
     Route: 048
     Dates: start: 201009, end: 201104

REACTIONS (2)
  - Drug dependence [Recovered/Resolved]
  - Intentional drug misuse [Recovered/Resolved]
